FAERS Safety Report 17657411 (Version 1)
Quarter: 2020Q2

REPORT INFORMATION
  Report Type: Spontaneous
  Country: FR (occurrence: FR)
  Receive Date: 20200410
  Receipt Date: 20200410
  Transmission Date: 20200713
  Serious: Yes (Other)
  Sender: FDA-Public Use
  Company Number: FR-PFIZER INC-2020146886

PATIENT
  Age: 17 Year
  Sex: Female

DRUGS (5)
  1. ALPRAZOLAM. [Suspect]
     Active Substance: ALPRAZOLAM
     Dosage: 0.25 MG, 1X/DAY
     Route: 048
     Dates: start: 20191211, end: 20200131
  2. TERCIAN [CYAMEMAZINE TARTRATE] [Suspect]
     Active Substance: CYAMEMAZINE
     Dosage: 25 MG, 1X/DAY
     Route: 048
     Dates: start: 20191223, end: 20200131
  3. HALDOL [Suspect]
     Active Substance: HALOPERIDOL
     Dosage: 5 MG, 1X/DAY
     Route: 048
     Dates: start: 20191223, end: 20200131
  4. MIRTAZAPINE. [Suspect]
     Active Substance: MIRTAZAPINE
     Dosage: 15 MG, 1X/DAY
     Route: 048
     Dates: start: 20190110, end: 20200131
  5. PAROXETINE HCL [Suspect]
     Active Substance: PAROXETINE HYDROCHLORIDE
     Dosage: 40 MG, 1X/DAY
     Route: 048
     Dates: start: 20191211, end: 20200131

REACTIONS (3)
  - Hepatocellular injury [Recovering/Resolving]
  - Off label use [Unknown]
  - Product use issue [Unknown]

NARRATIVE: CASE EVENT DATE: 20191211
